FAERS Safety Report 11419528 (Version 1)
Quarter: 2015Q3

REPORT INFORMATION
  Report Type: Spontaneous
  Country: US (occurrence: None)
  Receive Date: 20150825
  Receipt Date: 20150825
  Transmission Date: 20151125
  Serious: Yes (Hospitalization)
  Sender: FDA-Public Use
  Company Number: None

PATIENT
  Age: 56 Year
  Sex: Female
  Weight: 61.1 kg

DRUGS (7)
  1. LEVOFLOXACIN. [Concomitant]
     Active Substance: LEVOFLOXACIN
  2. PASIREOTIDE [Suspect]
     Active Substance: PASIREOTIDE
     Indication: LIVER DISORDER
     Dosage: EVERY 28 DAYS
     Route: 030
     Dates: start: 20140210, end: 20150729
  3. SOM230/PASIREOTIDE [Concomitant]
  4. PASIREOTIDE [Suspect]
     Active Substance: PASIREOTIDE
     Indication: CONGENITAL CYSTIC KIDNEY DISEASE
     Dosage: EVERY 28 DAYS
     Route: 030
     Dates: start: 20140210, end: 20150729
  5. DOCUSATE SODIUM. [Concomitant]
     Active Substance: DOCUSATE SODIUM
  6. SPIRONOLACTONE. [Concomitant]
     Active Substance: SPIRONOLACTONE
  7. SENNA [Concomitant]
     Active Substance: SENNA LEAF\SENNOSIDES\SENNOSIDES A AND B

REACTIONS (2)
  - Hepatic cyst infection [None]
  - Enterobacter infection [None]

NARRATIVE: CASE EVENT DATE: 20150731
